FAERS Safety Report 23396378 (Version 1)
Quarter: 2024Q1

REPORT INFORMATION
  Report Type: Spontaneous
  Country: US (occurrence: None)
  Receive Date: 20240112
  Receipt Date: 20240112
  Transmission Date: 20240410
  Serious: No
  Sender: FDA-Public Use
  Company Number: 2024A008213

PATIENT
  Age: 828 Month
  Sex: Female

DRUGS (1)
  1. FASENRA [Suspect]
     Active Substance: BENRALIZUMAB
     Dosage: UNKNOWN
     Route: 058

REACTIONS (4)
  - Fall [Not Recovered/Not Resolved]
  - Wrist fracture [Unknown]
  - Dysgraphia [Unknown]
  - Cough [Unknown]

NARRATIVE: CASE EVENT DATE: 20230201
